FAERS Safety Report 4843110-7 (Version None)
Quarter: 2005Q4

REPORT INFORMATION
  Report Type: 
  Country: None (occurrence: None)
  Receive Date: 20051027
  Receipt Date: 20050921
  Transmission Date: 20060501
  Serious: No
  Sender: FDA-Public Use
  Company Number: ZICO001299

PATIENT
  Age: 53 Year
  Sex: Male

DRUGS (9)
  1. PRIALT [Suspect]
     Dosage: 0.25 MCG/HR INTRATHECAL
     Route: 037
     Dates: start: 20050701, end: 20050920
  2. NEURONTIN [Concomitant]
  3. DILAUDID [Concomitant]
  4. CELEBREX [Concomitant]
  5. TRAZODONE HCL [Concomitant]
  6. CELEXA [Concomitant]
  7. INTRATHECAL DILAUDID (INTRATHECAL DILAUDID) [Concomitant]
  8. CLONIDINE [Concomitant]
  9. ZYRTEC [Concomitant]

REACTIONS (2)
  - FALL [None]
  - LIMB INJURY [None]
